FAERS Safety Report 16425547 (Version 1)
Quarter: 2019Q2

REPORT INFORMATION
  Report Type: Spontaneous
  Country: US (occurrence: US)
  Receive Date: 20190613
  Receipt Date: 20190613
  Transmission Date: 20190711
  Serious: No
  Sender: FDA-Public Use
  Company Number: US-PFIZER INC-2019250511

PATIENT
  Age: 66 Year
  Sex: Female
  Weight: 87.9 kg

DRUGS (2)
  1. LYRICA [Suspect]
     Active Substance: PREGABALIN
     Indication: FIBROMYALGIA
     Dosage: 100 MG, THREE TIMES ADAY
     Route: 048
  2. LYRICA [Suspect]
     Active Substance: PREGABALIN
     Dosage: 450 MG, DAILY (1 CAPSULE IN THE MORNING AND 2 CAPSULES AT NIGHT)
     Route: 048
     Dates: start: 20190606

REACTIONS (3)
  - Off label use [Unknown]
  - Product use issue [Unknown]
  - Malaise [Not Recovered/Not Resolved]

NARRATIVE: CASE EVENT DATE: 201904
